FAERS Safety Report 16955765 (Version 1)
Quarter: 2019Q4

REPORT INFORMATION
  Report Type: Spontaneous
  Country: DE (occurrence: DE)
  Receive Date: 20191024
  Receipt Date: 20191024
  Transmission Date: 20200122
  Serious: Yes (Other)
  Sender: FDA-Public Use
  Company Number: DE-TEVA-2019-DE-1125351

PATIENT
  Age: 69 Year
  Sex: Male

DRUGS (1)
  1. SILDENAFIL ABZ 100 MG FILMTABLETTEN [Suspect]
     Active Substance: SILDENAFIL
     Indication: ERECTILE DYSFUNCTION
     Dosage: 0.5-1 TABLET PER MONTH
     Route: 048

REACTIONS (3)
  - Retinal tear [Unknown]
  - Retinal detachment [Unknown]
  - Retinal tear [Unknown]

NARRATIVE: CASE EVENT DATE: 2018
